FAERS Safety Report 7349000-2 (Version None)
Quarter: 2011Q1

REPORT INFORMATION
  Report Type: 
  Country: None (occurrence: None)
  Receive Date: 20110314
  Receipt Date: 20110302
  Transmission Date: 20110831
  Serious: Yes (Hospitalization, Other)
  Sender: FDA-Public Use
  Company Number: DE-ELI_LILLY_AND_COMPANY-DE201010000012

PATIENT
  Sex: Female

DRUGS (5)
  1. METFORMIN [Concomitant]
     Dosage: 1000 MG, 2/D
     Route: 048
     Dates: start: 20100901, end: 20110101
  2. INSULIN [Concomitant]
     Dosage: UNK, 3/D
     Dates: start: 20101001, end: 20110101
  3. BYETTA [Suspect]
     Dosage: 10 UG, EACH EVENING
     Route: 058
     Dates: start: 20101012, end: 20101015
  4. GLIMEPIRID [Concomitant]
     Dosage: UNK, EACH MORNING
     Route: 048
     Dates: start: 20100901
  5. BYETTA [Suspect]
     Indication: TYPE 2 DIABETES MELLITUS
     Dosage: 5 UG, EACH MORNING
     Route: 058
     Dates: start: 20100901

REACTIONS (5)
  - BILE DUCT CANCER [None]
  - NAUSEA [None]
  - ABDOMINAL PAIN UPPER [None]
  - BLOOD GLUCOSE INCREASED [None]
  - PANCREATIC CARCINOMA [None]
